FAERS Safety Report 7486586-1 (Version None)
Quarter: 2011Q2

REPORT INFORMATION
  Report Type: 
  Country: None (occurrence: None)
  Receive Date: 20110517
  Receipt Date: 20110510
  Transmission Date: 20111010
  Serious: Yes (Other)
  Sender: FDA-Public Use
  Company Number: DE-PFIZER INC-2011094531

PATIENT
  Age: 62 Year
  Sex: Female

DRUGS (1)
  1. ZIPRASIDONE HCL [Suspect]
     Indication: SCHIZOAFFECTIVE DISORDER
     Dosage: 60MG DAILY
     Route: 048
     Dates: start: 20081101

REACTIONS (2)
  - OBSESSIVE-COMPULSIVE DISORDER [None]
  - DRY EYE [None]
